FAERS Safety Report 12877051 (Version 1)
Quarter: 2016Q4

REPORT INFORMATION
  Report Type: Spontaneous
  Country: US (occurrence: US)
  Receive Date: 20161022
  Receipt Date: 20161022
  Transmission Date: 20170207
  Serious: Yes (Other)
  Sender: FDA-Public Use
  Company Number: None

PATIENT
  Age: 66 Year
  Sex: Female
  Weight: 66.6 kg

DRUGS (7)
  1. PREMARIN [Concomitant]
     Active Substance: ESTROGENS, CONJUGATED
  2. ADVIL [Concomitant]
     Active Substance: IBUPROFEN
  3. ENBREL [Concomitant]
     Active Substance: ETANERCEPT
  4. ARMOUR THYROID [Concomitant]
     Active Substance: THYROID, PORCINE
  5. FISH OIL [Concomitant]
     Active Substance: FISH OIL
  6. NP THYROID 90 [Suspect]
     Active Substance: LEVOTHYROXINE\LIOTHYRONINE
     Indication: AUTOIMMUNE THYROIDITIS
     Dosage: ?          QUANTITY:1 TABLET(S);?
     Route: 060
  7. VITAMIN C [Concomitant]
     Active Substance: ASCORBIC ACID

REACTIONS (6)
  - Sensation of foreign body [None]
  - Musculoskeletal pain [None]
  - Drug ineffective [None]
  - Product substitution issue [None]
  - Palpitations [None]
  - Product physical consistency issue [None]

NARRATIVE: CASE EVENT DATE: 20160914
